FAERS Safety Report 25177940 (Version 2)
Quarter: 2025Q2

REPORT INFORMATION
  Report Type: Spontaneous
  Country: CA (occurrence: CA)
  Receive Date: 20250409
  Receipt Date: 20250415
  Transmission Date: 20250716
  Serious: Yes (Other)
  Sender: BAXTER
  Company Number: CA-BAXTER-2025BAX013584

PATIENT
  Age: 87 Year
  Sex: Female
  Weight: 72.6 kg

DRUGS (2)
  1. CEFAZOLIN [Suspect]
     Active Substance: CEFAZOLIN
     Indication: Staphylococcal bacteraemia
     Route: 042
  2. NITROFURANTOIN [Concomitant]
     Active Substance: NITROFURANTOIN
     Indication: Urinary tract infection
     Route: 065

REACTIONS (7)
  - Metabolic encephalopathy [Unknown]
  - Medication error [Unknown]
  - Seizure [Unknown]
  - Eye movement disorder [Unknown]
  - Tongue biting [Unknown]
  - Mental impairment [Unknown]
  - Neurotoxicity [Unknown]
